FAERS Safety Report 5051888-5 (Version None)
Quarter: 2006Q3

REPORT INFORMATION
  Report Type: 
  Country: None (occurrence: None)
  Receive Date: 20060710
  Receipt Date: 20060627
  Transmission Date: 20061208
  Serious: Yes (Hospitalization, Other)
  Sender: FDA-Public Use
  Company Number: 200613611BWH

PATIENT
  Age: 54 Year
  Sex: Male
  Weight: 67.2 kg

DRUGS (16)
  1. SORAFENIB [Suspect]
     Indication: METASTATIC NEOPLASM
     Dosage: SEE IMAGE
     Route: 048
     Dates: start: 20060513, end: 20060517
  2. SORAFENIB [Suspect]
     Indication: TRANSITIONAL CELL CARCINOMA
     Dosage: SEE IMAGE
     Route: 048
     Dates: start: 20060513, end: 20060517
  3. SORAFENIB [Suspect]
     Indication: METASTATIC NEOPLASM
     Dosage: SEE IMAGE
     Route: 048
     Dates: start: 20060530, end: 20060610
  4. SORAFENIB [Suspect]
     Indication: TRANSITIONAL CELL CARCINOMA
     Dosage: SEE IMAGE
     Route: 048
     Dates: start: 20060530, end: 20060610
  5. MOXIFLOXACIN HCL [Suspect]
     Dosage: 400 MG, TOTAL DAILY, ORAL
     Route: 048
     Dates: start: 20060511
  6. NEURONTIN [Concomitant]
  7. FOLIC ACID [Concomitant]
  8. OXYCODONE HCL [Concomitant]
  9. PREDNISONE [Concomitant]
  10. COMBIVENT [Concomitant]
  11. METOCLOPRAMIDE HYDROCHLORIDE [Concomitant]
  12. OXYCONTIN [Concomitant]
  13. MOTRIN [Concomitant]
  14. ZITHROMAX [Concomitant]
  15. FLOMAX [Concomitant]
  16. MEGACE [Concomitant]

REACTIONS (11)
  - CONDITION AGGRAVATED [None]
  - DYSPNOEA EXERTIONAL [None]
  - FATIGUE [None]
  - FLANK PAIN [None]
  - HAEMATURIA [None]
  - MUSCULOSKELETAL CHEST PAIN [None]
  - NEPHRITIS [None]
  - PLEURITIC PAIN [None]
  - RIB FRACTURE [None]
  - TACHYCARDIA [None]
  - WEGENER'S GRANULOMATOSIS [None]
